FAERS Safety Report 4374965-0 (Version None)
Quarter: 2004Q2

REPORT INFORMATION
  Report Type: 
  Country: None (occurrence: None)
  Receive Date: 20040603
  Receipt Date: 20031105
  Transmission Date: 20050107
  Serious: Yes (Death, Other)
  Sender: FDA-Public Use
  Company Number: 200319604US

PATIENT
  Age: 58 Year
  Sex: Female
  Weight: 72 kg

DRUGS (13)
  1. LOVENOX [Suspect]
     Indication: TRANSIENT ISCHAEMIC ATTACK
     Dosage: 76 MG Q12H INJ
     Dates: start: 20030213, end: 20030221
  2. WARFARIN SODIUM [Suspect]
     Indication: TRANSIENT ISCHAEMIC ATTACK
     Dosage: 5 MG QD PO
     Route: 048
     Dates: start: 20030216, end: 20030221
  3. ASPIRIN [Concomitant]
  4. KETOROLAC TROMETHAMINE (TORADOL) [Concomitant]
  5. SYNTHROID [Concomitant]
  6. EFFEXOR [Concomitant]
  7. AMBIEN [Concomitant]
  8. PROMETHAZINE HCL [Concomitant]
  9. VITAMIN B COMPLEX CAP [Concomitant]
  10. VANCOMYCIN [Concomitant]
  11. ESTROGENS CONJUGATED (PREMARIN) [Concomitant]
  12. MULTI-VITAMIN [Concomitant]
  13. CALCIUM [Concomitant]

REACTIONS (8)
  - CEREBRAL HAEMORRHAGE [None]
  - ELECTROENCEPHALOGRAM ABNORMAL [None]
  - HAEMOGLOBIN DECREASED [None]
  - HEADACHE [None]
  - INTERNATIONAL NORMALISED RATIO INCREASED [None]
  - KUSSMAUL RESPIRATION [None]
  - LOSS OF CONSCIOUSNESS [None]
  - PROTHROMBIN TIME PROLONGED [None]
